FAERS Safety Report 19394141 (Version 1)
Quarter: 2021Q2

REPORT INFORMATION
  Report Type: Spontaneous
  Country: US (occurrence: US)
  Receive Date: 20210609
  Receipt Date: 20210609
  Transmission Date: 20210717
  Serious: No
  Sender: FDA-Public Use
  Company Number: US-ASTRAZENECA-2021A423179

PATIENT
  Age: 37 Year
  Sex: Female

DRUGS (3)
  1. BREZTRI AEROSPHERE [Suspect]
     Active Substance: BUDESONIDE\FORMOTEROL\GLYCOPYRRONIUM
     Route: 055
  2. TOPICAL ECZEMA CREAM [Concomitant]
     Route: 061
  3. SYMBICORT [Suspect]
     Active Substance: BUDESONIDE\FORMOTEROL FUMARATE DIHYDRATE
     Route: 055

REACTIONS (2)
  - Off label use [Unknown]
  - Candida infection [Unknown]
